FAERS Safety Report 22355405 (Version 1)
Quarter: 2023Q2

REPORT INFORMATION
  Report Type: Spontaneous
  Country: US (occurrence: US)
  Receive Date: 20230523
  Receipt Date: 20230523
  Transmission Date: 20230722
  Serious: No
  Sender: FDA-Public Use
  Company Number: US-PFIZER INC-202300112497

PATIENT
  Age: 26 Year
  Sex: Female
  Weight: 70.76 kg

DRUGS (2)
  1. BICILLIN L-A [Suspect]
     Active Substance: PENICILLIN G BENZATHINE
     Indication: Syphilis
     Dosage: 4.8 MIU, SINGLE (4.8 MILLION UNITS AT ONCE)
     Route: 030
     Dates: start: 20230306, end: 20230306
  2. BICILLIN L-A [Suspect]
     Active Substance: PENICILLIN G BENZATHINE
     Dosage: 2.4 MIU, WEEKLY (ONCE WEEKLY FOR 3 CONSECUTIVE WEEKS)
     Route: 030
     Dates: start: 20230306, end: 20230314

REACTIONS (3)
  - Rhinalgia [Recovered/Resolved]
  - Injection site haemorrhage [Recovered/Resolved]
  - Accidental overdose [Unknown]

NARRATIVE: CASE EVENT DATE: 20230301
